FAERS Safety Report 12597766 (Version 1)
Quarter: 2016Q3

REPORT INFORMATION
  Report Type: Spontaneous
  Country: US (occurrence: None)
  Receive Date: 20160726
  Receipt Date: 20160726
  Transmission Date: 20161109
  Serious: Yes (Life-Threatening, Hospitalization, Other)
  Sender: FDA-Public Use
  Company Number: None

PATIENT
  Age: 58 Year
  Sex: Female
  Weight: 86.18 kg

DRUGS (16)
  1. LISINOPRIL-HCTZ [Concomitant]
     Active Substance: HYDROCHLOROTHIAZIDE\LISINOPRIL
  2. MULTIVITAMIN A-Z [Concomitant]
  3. AMIBAN [Concomitant]
  4. PANTOPRAZOLE [Concomitant]
     Active Substance: PANTOPRAZOLE SODIUM
  5. FENOFIBRATE. [Concomitant]
     Active Substance: FENOFIBRATE
  6. QUETIAPINE FUMARATE. [Concomitant]
     Active Substance: QUETIAPINE FUMARATE
  7. CALCUM + D [Concomitant]
  8. LINZESS [Concomitant]
     Active Substance: LINACLOTIDE
  9. OXCARBAZEPINE. [Concomitant]
     Active Substance: OXCARBAZEPINE
  10. MONTELUKAST [Concomitant]
     Active Substance: MONTELUKAST SODIUM
  11. VITAM C [Concomitant]
  12. ZOCOR [Concomitant]
     Active Substance: SIMVASTATIN
  13. CYCLOBENZAPRINE [Concomitant]
     Active Substance: CYCLOBENZAPRINE
  14. CLONAZEPAM. [Concomitant]
     Active Substance: CLONAZEPAM
  15. DILAUDID [Suspect]
     Active Substance: HYDROMORPHONE HYDROCHLORIDE
     Indication: PAIN
     Dosage: SHOT INJECTION
     Dates: start: 20160628, end: 20160628
  16. TRAZODONE [Concomitant]
     Active Substance: TRAZODONE HYDROCHLORIDE

REACTIONS (2)
  - Memory impairment [None]
  - Thinking abnormal [None]

NARRATIVE: CASE EVENT DATE: 20160628
